FAERS Safety Report 7726521-1 (Version None)
Quarter: 2011Q3

REPORT INFORMATION
  Report Type: 
  Country: None (occurrence: None)
  Receive Date: 20110902
  Receipt Date: 20110823
  Transmission Date: 20111222
  Serious: Yes (Hospitalization, Other)
  Sender: FDA-Public Use
  Company Number: PHHY2011BR39341

PATIENT
  Sex: Female

DRUGS (2)
  1. RISPERIDONE [Concomitant]
     Indication: ANXIETY
     Dosage: 0.5 DF, BID
  2. EXELON [Suspect]
     Indication: DEMENTIA ALZHEIMER'S TYPE
     Dosage: 18MG/10CM2
     Route: 062

REACTIONS (7)
  - DISORIENTATION [None]
  - HYPOKINESIA [None]
  - URINARY TRACT INFECTION [None]
  - PNEUMONIA [None]
  - TREMOR [None]
  - MEMORY IMPAIRMENT [None]
  - FEMUR FRACTURE [None]
